FAERS Safety Report 8251782-2 (Version None)
Quarter: 2012Q2

REPORT INFORMATION
  Report Type: 
  Country: None (occurrence: None)
  Receive Date: 20120402
  Receipt Date: 20120327
  Transmission Date: 20120825
  Serious: No
  Sender: FDA-Public Use
  Company Number: US-PFIZER INC-2012056806

PATIENT
  Sex: Female

DRUGS (2)
  1. DEPO-PROVERA [Suspect]
     Dosage: UNK
     Dates: start: 20100503
  2. GARDASIL [Suspect]
     Dosage: UNK

REACTIONS (13)
  - TOOTHACHE [None]
  - HYPERSENSITIVITY [None]
  - ACTIVITIES OF DAILY LIVING IMPAIRED [None]
  - SEXUAL DYSFUNCTION [None]
  - BREAST TENDERNESS [None]
  - FATIGUE [None]
  - INSOMNIA [None]
  - ARTHRALGIA [None]
  - ABDOMINAL DISTENSION [None]
  - INCORRECT DOSE ADMINISTERED [None]
  - WEIGHT INCREASED [None]
  - NASOPHARYNGITIS [None]
  - HOT FLUSH [None]
